FAERS Safety Report 6539545-7 (Version None)
Quarter: 2010Q1

REPORT INFORMATION
  Report Type: 
  Country: None (occurrence: None)
  Receive Date: 20100115
  Receipt Date: 20100108
  Transmission Date: 20100710
  Serious: Yes (Hospitalization)
  Sender: FDA-Public Use
  Company Number: B0624289A

PATIENT
  Sex: Male

DRUGS (12)
  1. ZELITREX [Suspect]
     Route: 048
     Dates: start: 20090601, end: 20091001
  2. PROGRAF [Concomitant]
     Route: 065
  3. CELLCEPT [Concomitant]
     Route: 065
  4. CORTANCYL [Concomitant]
     Route: 065
  5. AMLOR [Concomitant]
     Route: 065
  6. SECTRAL [Concomitant]
     Route: 065
  7. NEXIUM [Concomitant]
     Route: 065
  8. XATRAL [Concomitant]
     Route: 065
  9. NEURONTIN [Concomitant]
     Route: 065
  10. IMOVANE [Concomitant]
     Route: 065
  11. NOVONORM [Concomitant]
     Route: 065
  12. LASILIX [Concomitant]
     Route: 065

REACTIONS (2)
  - MYOCLONUS [None]
  - OVERDOSE [None]
